FAERS Safety Report 21602283 (Version 1)
Quarter: 2022Q4

REPORT INFORMATION
  Report Type: Spontaneous
  Country: ZA (occurrence: ZA)
  Receive Date: 20221116
  Receipt Date: 20221116
  Transmission Date: 20230113
  Serious: Yes (Other)
  Sender: FDA-Public Use
  Company Number: ZA-drreddys-LIT/SAF/22/0156955

PATIENT
  Age: 58 Year
  Sex: Female

DRUGS (17)
  1. BORTEZOMIB [Suspect]
     Active Substance: BORTEZOMIB
     Indication: Plasma cell myeloma
     Dosage: WEEKLY OVER 28-DAY CYCLES
     Route: 058
     Dates: start: 202003
  2. BORTEZOMIB [Suspect]
     Active Substance: BORTEZOMIB
     Dosage: 5TH LINE PAD 3 CYCLES
     Dates: start: 201904
  3. DOXORUBICIN [Suspect]
     Active Substance: DOXORUBICIN
     Indication: Plasma cell myeloma
     Dosage: 1ST LINE VAD 6 CYCLES
     Dates: start: 2000
  4. DOXORUBICIN [Suspect]
     Active Substance: DOXORUBICIN
     Dosage: 5TH LINE PAD 3 CYCLES
     Dates: start: 201904
  5. DOXORUBICIN [Suspect]
     Active Substance: DOXORUBICIN
     Dosage: 1ST LINE 6 CYCLES
     Dates: start: 2002
  6. DEXAMETHASONE [Suspect]
     Active Substance: DEXAMETHASONE
     Indication: Plasma cell myeloma
     Dosage: 1ST LINE VAD 6 CYCLES
     Dates: start: 2000
  7. DEXAMETHASONE [Suspect]
     Active Substance: DEXAMETHASONE
     Dosage: WEEKLY OVER 28-DAY CYCLES
     Route: 048
     Dates: start: 202003
  8. DEXAMETHASONE [Suspect]
     Active Substance: DEXAMETHASONE
     Dosage: 2ND LINE CTD 6 CYCLES
     Dates: start: 201404
  9. DEXAMETHASONE [Suspect]
     Active Substance: DEXAMETHASONE
     Dosage: 4TH LINE IRD 5 CYCLES
     Dates: start: 201808
  10. DEXAMETHASONE [Suspect]
     Active Substance: DEXAMETHASONE
     Dosage: 5TH LINE PAD 3 CYCLES
     Dates: start: 201904
  11. DEXAMETHASONE [Suspect]
     Active Substance: DEXAMETHASONE
     Dosage: 6TH LINE DCEP 3 CYCLES
     Dates: start: 201906
  12. DEXAMETHASONE [Suspect]
     Active Substance: DEXAMETHASONE
     Dosage: 8TH LINE POM/DEX 2 CYCLES
     Dates: start: 201912
  13. DEXAMETHASONE [Suspect]
     Active Substance: DEXAMETHASONE
     Dosage: 1ST LINE VAD 6 CYCLES
     Dates: start: 2002
  14. DEXAMETHASONE [Suspect]
     Active Substance: DEXAMETHASONE
     Dosage: 3RD LINE ICD 3 CYCLE
     Dates: start: 201705
  15. SELINEXOR [Suspect]
     Active Substance: SELINEXOR
     Indication: Plasma cell myeloma
     Dosage: WEEKLY OVER 28-DAY CYCLES
     Route: 048
     Dates: start: 202003
  16. LENALIDOMIDE [Suspect]
     Active Substance: LENALIDOMIDE
     Indication: Plasma cell myeloma
     Dosage: 4TH LINE IRD 5 CYCLES
  17. LENALIDOMIDE [Suspect]
     Active Substance: LENALIDOMIDE

REACTIONS (6)
  - Bone marrow failure [Unknown]
  - Therapy partial responder [Unknown]
  - Anaemia [Unknown]
  - Leukopenia [Unknown]
  - Neutropenia [Unknown]
  - Thrombocytopenia [Unknown]
